FAERS Safety Report 7680133-7 (Version None)
Quarter: 2011Q3

REPORT INFORMATION
  Report Type: 
  Country: None (occurrence: None)
  Receive Date: 20110812
  Receipt Date: 20110805
  Transmission Date: 20111222
  Serious: Yes (Other)
  Sender: FDA-Public Use
  Company Number: CL-ROCHE-795086

PATIENT
  Sex: Male
  Weight: 65 kg

DRUGS (1)
  1. XELODA [Suspect]
     Indication: COLON CANCER
     Dosage: FREQ: 1500MG IN THE MORNING AND 1000MG AT NIGHT.
     Route: 048
     Dates: start: 20110802

REACTIONS (7)
  - DIZZINESS [None]
  - DIARRHOEA [None]
  - MUSCULAR WEAKNESS [None]
  - DEHYDRATION [None]
  - GASTRITIS [None]
  - HEPATIC PAIN [None]
  - ABDOMINAL PAIN UPPER [None]
